FAERS Safety Report 4462631-2 (Version None)
Quarter: 2004Q3

REPORT INFORMATION
  Report Type: 
  Country: None (occurrence: None)
  Receive Date: 20040929
  Receipt Date: 20040913
  Transmission Date: 20050211
  Serious: Yes (Death, Hospitalization, Other)
  Sender: FDA-Public Use
  Company Number: US-JNJFOC-20040903644

PATIENT
  Age: 22 Month
  Sex: Male
  Weight: 12 kg

DRUGS (1)
  1. ACETAMINOPHEN INFANTS' (ACETAMINOPHEN)  DROPS [Suspect]
     Indication: VIRAL INFECTION
     Dosage: 750 MG, 1 IN 4 HOUR, ORAL
     Route: 048

REACTIONS (7)
  - ALANINE AMINOTRANSFERASE INCREASED [None]
  - AMMONIA INCREASED [None]
  - ASPARTATE AMINOTRANSFERASE INCREASED [None]
  - HEPATOMEGALY [None]
  - INTERNATIONAL NORMALISED RATIO INCREASED [None]
  - LETHARGY [None]
  - VOMITING [None]
